FAERS Safety Report 21723515 (Version 1)
Quarter: 2022Q4

REPORT INFORMATION
  Report Type: Spontaneous
  Country: US (occurrence: US)
  Receive Date: 20221213
  Receipt Date: 20221213
  Transmission Date: 20230113
  Serious: Yes (Other)
  Sender: FDA-Public Use
  Company Number: US-TAKEDA-2022TUS095398

PATIENT
  Sex: Male
  Weight: 76 kg

DRUGS (1)
  1. DEXILANT [Suspect]
     Active Substance: DEXLANSOPRAZOLE
     Indication: Gastrooesophageal reflux disease
     Dosage: 60 MILLIGRAM, QD
     Route: 065
     Dates: start: 2018

REACTIONS (6)
  - Post procedural infection [Unknown]
  - Stress [Unknown]
  - Hypersomnia [Unknown]
  - COVID-19 [Unknown]
  - Gastrooesophageal reflux disease [Unknown]
  - Influenza [Unknown]
